FAERS Safety Report 4503439-9 (Version None)
Quarter: 2004Q4

REPORT INFORMATION
  Report Type: 
  Country: None (occurrence: None)
  Receive Date: 20041117
  Receipt Date: 20041112
  Transmission Date: 20050328
  Serious: Yes (Other)
  Sender: FDA-Public Use
  Company Number: BG-JNJFOC-20041103440

PATIENT
  Age: 45 Year
  Sex: Male

DRUGS (2)
  1. CLADRIBINE [Suspect]
     Route: 042
  2. ANTI-TUBERCULOSIS THERAPY [Suspect]

REACTIONS (3)
  - BONE TUBERCULOSIS [None]
  - OSTEOPOROSIS [None]
  - REFLEX SYMPATHETIC DYSTROPHY [None]
